FAERS Safety Report 7961322-0 (Version None)
Quarter: 2011Q4

REPORT INFORMATION
  Report Type: 
  Country: None (occurrence: None)
  Receive Date: 20111202
  Receipt Date: 20111122
  Transmission Date: 20120403
  Serious: Yes (Other)
  Sender: FDA-Public Use
  Company Number: 2011MA006937

PATIENT
  Age: 60 Year
  Sex: Female
  Weight: 74.8435 kg

DRUGS (26)
  1. METOCLOPRAMIDE [Suspect]
     Indication: GASTROOESOPHAGEAL REFLUX DISEASE
     Dosage: 5 MG;BID
     Dates: start: 20031006, end: 20100225
  2. EFFEXOR XR [Concomitant]
  3. EPIDRIN [Concomitant]
  4. NORVASC [Concomitant]
  5. PLAVIX [Concomitant]
  6. TOPROL-XL [Concomitant]
  7. ADVAIR DISKUS 100/50 [Concomitant]
  8. CIPROFLOXACIN [Concomitant]
  9. PREVACID [Concomitant]
  10. PROMETHAZINE [Concomitant]
  11. ZANTAC [Concomitant]
  12. DYAZIDE [Concomitant]
  13. XANAX [Concomitant]
  14. BEXTRA [Concomitant]
  15. BACTRIM [Concomitant]
  16. MIDRIN [Concomitant]
  17. LASIX [Concomitant]
  18. NEXIUM [Concomitant]
  19. PROTONIX [Concomitant]
  20. SOMA [Concomitant]
  21. DIOVAN HCT [Concomitant]
  22. LOMOTIL [Concomitant]
  23. POTASSIUM CHLORIDE [Concomitant]
  24. ALBUTEROL INHALER [Concomitant]
  25. DARVOCET-N 50 [Concomitant]
  26. NITROGLYCERIN [Concomitant]

REACTIONS (8)
  - GASTROOESOPHAGEAL REFLUX DISEASE [None]
  - COLONIC POLYP [None]
  - DIVERTICULUM [None]
  - INJURY [None]
  - TARDIVE DYSKINESIA [None]
  - EMOTIONAL DISORDER [None]
  - MUSCLE TWITCHING [None]
  - HIATUS HERNIA [None]
